FAERS Safety Report 7001611-X (Version None)
Quarter: 2010Q3

REPORT INFORMATION
  Report Type: 
  Country: None (occurrence: None)
  Receive Date: 20100920
  Receipt Date: 20100909
  Transmission Date: 20110219
  Serious: Yes (Hospitalization)
  Sender: FDA-Public Use
  Company Number: US-JNJFOC-20100904545

PATIENT
  Sex: Male
  Weight: 54.7 kg

DRUGS (4)
  1. REMICADE [Suspect]
     Indication: INFLAMMATORY BOWEL DISEASE
     Route: 042
  2. ELAVIL [Suspect]
     Indication: NAUSEA
  3. ELAVIL [Suspect]
     Indication: VOMITING
  4. 5-ASA [Concomitant]
     Route: 048

REACTIONS (2)
  - CYCLIC VOMITING SYNDROME [None]
  - DYSTONIA [None]
